FAERS Safety Report 8093526-3 (Version None)
Quarter: 2012Q1

REPORT INFORMATION
  Report Type: 
  Country: None (occurrence: None)
  Receive Date: 20120129
  Receipt Date: 20111016
  Transmission Date: 20120608
  Serious: No
  Sender: FDA-Public Use
  Company Number: US-ABBOTT-11P-163-0865608-00

PATIENT
  Age: 58 Year
  Sex: Male

DRUGS (9)
  1. MULTI-VITAMINS [Concomitant]
     Indication: VITAMIN SUPPLEMENTATION
  2. HUMIRA [Suspect]
     Dates: start: 20111011
  3. VITAMIN D [Concomitant]
     Indication: VITAMIN SUPPLEMENTATION
  4. FISH OIL [Concomitant]
     Indication: SUPPLEMENTATION THERAPY
  5. CALCIUM [Concomitant]
     Indication: MINERAL SUPPLEMENTATION
  6. PREDNISONE TAB [Concomitant]
     Indication: PRODUCT USED FOR UNKNOWN INDICATION
  7. ASACOL [Concomitant]
     Indication: CROHN'S DISEASE
     Dosage: 800GRAM TWO TABLETS THREE TIMES DAILY
  8. EXFORGE [Concomitant]
     Indication: HYPERTENSION
     Dosage: 5/160 DAILY
  9. HUMIRA [Suspect]
     Indication: CROHN'S DISEASE
     Dates: start: 20110624

REACTIONS (6)
  - INJECTION SITE PRURITUS [None]
  - GASTROOESOPHAGEAL REFLUX DISEASE [None]
  - MUCOUS STOOLS [None]
  - INJECTION SITE ERYTHEMA [None]
  - RECTAL HAEMORRHAGE [None]
  - FREQUENT BOWEL MOVEMENTS [None]
